FAERS Safety Report 19099724 (Version 2)
Quarter: 2021Q2

REPORT INFORMATION
  Report Type: Report from Study
  Country: None (occurrence: US)
  Receive Date: 20210406
  Receipt Date: 20210419
  Transmission Date: 20210717
  Serious: Yes (Hospitalization)
  Sender: FDA-Public Use
  Company Number: US-ABBVIE-20K-163-3675343-00

PATIENT
  Age: 66 Year
  Sex: Male
  Weight: 70.37 kg

DRUGS (6)
  1. SKYRIZI [Suspect]
     Active Substance: RISANKIZUMAB-RZAA
     Indication: PSORIASIS
     Route: 058
     Dates: start: 202006, end: 202009
  2. METOPROLOL. [Concomitant]
     Active Substance: METOPROLOL
     Indication: ATRIAL FIBRILLATION
  3. COVID?19 VACCINE NOS. [Concomitant]
     Active Substance: COVID-19 VACCINE NOS
     Dosage: PFIZER
     Route: 030
     Dates: start: 20210329, end: 20210329
  4. ASPIRIN. [Concomitant]
     Active Substance: ASPIRIN
     Indication: ATRIAL FIBRILLATION
  5. COVID?19 VACCINE NOS. [Concomitant]
     Active Substance: COVID-19 VACCINE NOS
     Indication: COVID-19 IMMUNISATION
     Dosage: PFIZER
     Route: 030
     Dates: start: 20210308, end: 20210308
  6. FLOMAX [Concomitant]
     Active Substance: TAMSULOSIN HYDROCHLORIDE
     Indication: PROSTATIC DISORDER

REACTIONS (13)
  - COVID-19 [Recovering/Resolving]
  - Cough [Recovered/Resolved]
  - Fatigue [Recovering/Resolving]
  - Pneumonia [Recovered/Resolved]
  - Dyspnoea [Recovering/Resolving]
  - Asthenia [Recovering/Resolving]
  - Pyrexia [Recovered/Resolved]
  - Headache [Recovered/Resolved]
  - Atrial fibrillation [Recovering/Resolving]
  - Psoriasis [Unknown]
  - Ageusia [Recovered/Resolved]
  - Chills [Recovered/Resolved]
  - Anosmia [Recovered/Resolved]

NARRATIVE: CASE EVENT DATE: 20201031
